FAERS Safety Report 12159152 (Version 1)
Quarter: 2016Q1

REPORT INFORMATION
  Report Type: Spontaneous
  Country: US (occurrence: None)
  Receive Date: 20160307
  Receipt Date: 20160307
  Transmission Date: 20160526
  Serious: Yes (Hospitalization)
  Sender: FDA-Public Use
  Company Number: None

PATIENT
  Age: 56 Year
  Sex: Female
  Weight: 83.9 kg

DRUGS (3)
  1. METFORMIN HYDROCHLORIDE. [Suspect]
     Active Substance: METFORMIN HYDROCHLORIDE
     Dates: end: 20160215
  2. CARBOPLATIN. [Suspect]
     Active Substance: CARBOPLATIN
     Dates: end: 20160209
  3. TAXOL [Suspect]
     Active Substance: PACLITAXEL
     Dates: end: 20160209

REACTIONS (6)
  - Posterior reversible encephalopathy syndrome [None]
  - Cognitive disorder [None]
  - Vomiting [None]
  - Nausea [None]
  - Dysarthria [None]
  - Seizure [None]

NARRATIVE: CASE EVENT DATE: 20160216
